FAERS Safety Report 8402315-9 (Version None)
Quarter: 2012Q2

REPORT INFORMATION
  Report Type: 
  Country: None (occurrence: None)
  Receive Date: 20120601
  Receipt Date: 20120530
  Transmission Date: 20120825
  Serious: Yes (Life-Threatening, Hospitalization, Disabling)
  Sender: FDA-Public Use
  Company Number: JP-B.I. PHARMACEUTICALS,INC./RIDGEFIELD-2011-BP-23145NB

PATIENT
  Sex: Female
  Weight: 34 kg

DRUGS (11)
  1. ASPIRIN [Suspect]
     Dosage: 100 MG
     Route: 065
     Dates: start: 20100807, end: 20110910
  2. METOPROLOL TARTRATE [Concomitant]
     Dosage: 60 MG
     Route: 065
  3. SEROQUEL [Concomitant]
     Dosage: 100 MG
     Route: 065
  4. RISEDRONATE SODIUM [Concomitant]
     Dosage: 2.5 MG
     Route: 065
  5. LIVALO [Concomitant]
     Dosage: 1 MG
     Route: 065
  6. PRADAXA [Suspect]
     Indication: ATRIAL FIBRILLATION
     Dosage: 220 MG
     Route: 048
     Dates: start: 20110601, end: 20110910
  7. PRAMIPEXOLE DIHYDROCHLORIDE [Concomitant]
     Dosage: 0.5 MG
     Route: 065
  8. LASIX [Concomitant]
     Indication: CARDIAC FAILURE
     Dosage: 20 MG
     Route: 065
  9. ARICEPT [Concomitant]
     Dosage: 1.5 MG
     Route: 065
  10. MICARDIS [Concomitant]
     Dosage: 20 MG
     Route: 065
  11. ASPENON [Concomitant]
     Indication: ATRIAL FIBRILLATION
     Dosage: 20 MG
     Route: 065

REACTIONS (3)
  - HEMIPLEGIA [None]
  - CEREBRAL HAEMORRHAGE [None]
  - ALTERED STATE OF CONSCIOUSNESS [None]
